FAERS Safety Report 10935370 (Version 1)
Quarter: 2015Q1

REPORT INFORMATION
  Report Type: Spontaneous
  Country: US (occurrence: US)
  Receive Date: 20150320
  Receipt Date: 20150320
  Transmission Date: 20150721
  Serious: Yes (Hospitalization, Disabling)
  Sender: FDA-Public Use
  Company Number: US-WATSON-2015-05495

PATIENT
  Age: 50 Year
  Sex: Male

DRUGS (2)
  1. DEPO-TESTOSTERONE [Suspect]
     Active Substance: TESTOSTERONE CYPIONATE
     Indication: BLOOD TESTOSTERONE DECREASED
     Dosage: ^200MG/1ML, ROUGHLY EVERY ONE TO THREE WEEKS^
     Route: 030
     Dates: start: 20120326, end: 201312
  2. TESTOSTERONE CYPIONATE (UNKNOWN) [Suspect]
     Active Substance: TESTOSTERONE CYPIONATE
     Indication: BLOOD TESTOSTERONE DECREASED
     Dosage: ^200MG/1ML, ROUGHLY EVERY ONE TO THREE WEEKS^
     Route: 030
     Dates: start: 20120326, end: 201312

REACTIONS (6)
  - Vena cava thrombosis [Unknown]
  - Iliac vein occlusion [Unknown]
  - Superior vena cava occlusion [Unknown]
  - Pulmonary embolism [Unknown]
  - Deep vein thrombosis [Unknown]
  - Inferior vena caval occlusion [Unknown]

NARRATIVE: CASE EVENT DATE: 20140104
